FAERS Safety Report 9036219 (Version 1)
Quarter: 2013Q1

REPORT INFORMATION
  Report Type: Spontaneous
  Country: US (occurrence: None)
  Receive Date: 20130117
  Receipt Date: 20130117
  Transmission Date: 20140127
  Serious: Yes (Other)
  Sender: FDA-Public Use
  Company Number: None

PATIENT
  Age: 53 Year
  Sex: Female

DRUGS (1)
  1. AZITHROMYCIN [Suspect]
     Dates: start: 20111028, end: 20111102

REACTIONS (9)
  - Drug-induced liver injury [None]
  - Jaundice [None]
  - Weight decreased [None]
  - Abdominal pain upper [None]
  - Vulvovaginal pain [None]
  - Chromaturia [None]
  - Aspartate aminotransferase increased [None]
  - Alanine aminotransferase increased [None]
  - Blood bilirubin increased [None]
